FAERS Safety Report 10787856 (Version 1)
Quarter: 2015Q1

REPORT INFORMATION
  Report Type: Spontaneous
  Country: US (occurrence: None)
  Receive Date: 20150211
  Receipt Date: 20150211
  Transmission Date: 20150721
  Serious: Yes (Congenital Anomaly)
  Sender: FDA-Public Use
  Company Number: None

PATIENT
  Age: 1 Day
  Sex: Male
  Weight: 3 kg

DRUGS (7)
  1. PRENATAL VITAMIN [Concomitant]
     Active Substance: VITAMINS
  2. BUSPIRONE [Suspect]
     Active Substance: BUSPIRONE HYDROCHLORIDE
     Indication: DEPRESSION
     Route: 048
  3. SERTRALINE [Concomitant]
     Active Substance: SERTRALINE HYDROCHLORIDE
  4. TOBACCO [Concomitant]
     Active Substance: TOBACCO LEAF
  5. BUSPIRONE [Suspect]
     Active Substance: BUSPIRONE HYDROCHLORIDE
     Route: 048
  6. ALCHOLOL [Concomitant]
  7. ALBUTEROL. [Concomitant]
     Active Substance: ALBUTEROL

REACTIONS (6)
  - Thyroglossal cyst [None]
  - Caesarean section [None]
  - Hyperexplexia [None]
  - Hypotonia neonatal [None]
  - Maternal drugs affecting foetus [None]
  - Congenital nystagmus [None]

NARRATIVE: CASE EVENT DATE: 20141129
